FAERS Safety Report 9434915 (Version 1)
Quarter: 2013Q3

REPORT INFORMATION
  Report Type: Spontaneous
  Country: US (occurrence: US)
  Receive Date: 20130801
  Receipt Date: 20130801
  Transmission Date: 20140515
  Serious: Yes (Hospitalization)
  Sender: FDA-Public Use
  Company Number: CHPA2013US011878

PATIENT
  Age: 55 Year
  Sex: Female

DRUGS (2)
  1. PERDIEM OVERNIGHT RELIEF PILLS [Suspect]
     Indication: GASTROINTESTINAL HYPOMOTILITY
     Dosage: UNK, UNK
     Route: 048
  2. SENNOKOTT [Concomitant]
     Indication: GASTROINTESTINAL DISORDER
     Dosage: UNK, UNK
     Dates: start: 201306

REACTIONS (3)
  - Small intestinal obstruction [Unknown]
  - Therapeutic response unexpected [Unknown]
  - Off label use [Unknown]
